FAERS Safety Report 18845643 (Version 3)
Quarter: 2021Q1

REPORT INFORMATION
  Report Type: Spontaneous
  Country: US (occurrence: US)
  Receive Date: 20210204
  Receipt Date: 20210317
  Transmission Date: 20210419
  Serious: No
  Sender: FDA-Public Use
  Company Number: US-SA-2021SA033618

PATIENT
  Age: 61 Year
  Sex: Male

DRUGS (1)
  1. LANTUS SOLOSTAR [Suspect]
     Active Substance: INSULIN GLARGINE
     Indication: TYPE 2 DIABETES MELLITUS
     Dosage: 25?30 UNITS A DAY JUST DEPENDING ON SUGAR LEVEL
     Route: 065
     Dates: start: 2019

REACTIONS (4)
  - Intentional product use issue [Unknown]
  - Device operational issue [Unknown]
  - Incorrect dose administered by device [Unknown]
  - Blood glucose abnormal [Unknown]

NARRATIVE: CASE EVENT DATE: 20210126
